FAERS Safety Report 12491040 (Version 2)
Quarter: 2016Q3

REPORT INFORMATION
  Report Type: Spontaneous
  Country: BN (occurrence: BN)
  Receive Date: 20160623
  Receipt Date: 20160718
  Transmission Date: 20161109
  Serious: Yes (Other)
  Sender: FDA-Public Use
  Company Number: BN-ALEXION PHARMACEUTICALS INC-A201604518

PATIENT
  Sex: Male

DRUGS (2)
  1. SOLIRIS [Suspect]
     Active Substance: ECULIZUMAB
     Indication: PAROXYSMAL NOCTURNAL HAEMOGLOBINURIA
     Dosage: UNK
     Route: 042
  2. SOLIRIS [Suspect]
     Active Substance: ECULIZUMAB
     Dosage: 600 MG, UNK
     Route: 042
     Dates: start: 20160709

REACTIONS (2)
  - Blood lactate dehydrogenase increased [Unknown]
  - Fatigue [Unknown]
